FAERS Safety Report 11179064 (Version 1)
Quarter: 2015Q2

REPORT INFORMATION
  Report Type: Report from Study
  Country: US (occurrence: US)
  Receive Date: 20150610
  Receipt Date: 20150610
  Transmission Date: 20150821
  Serious: Yes (Other)
  Sender: FDA-Public Use
  Company Number: US-BAXTER-2015BAX031076

PATIENT
  Age: 60 Year
  Sex: Female

DRUGS (1)
  1. GAMMAGARD LIQUID [Suspect]
     Active Substance: HUMAN IMMUNOGLOBULIN G
     Indication: PRIMARY IMMUNODEFICIENCY SYNDROME
     Route: 058

REACTIONS (4)
  - Dysphonia [Unknown]
  - Sinusitis [Unknown]
  - Foot fracture [Unknown]
  - Asthma [Unknown]

NARRATIVE: CASE EVENT DATE: 201409
